FAERS Safety Report 9054795 (Version 1)
Quarter: 2013Q1

REPORT INFORMATION
  Report Type: Spontaneous
  Country: CN (occurrence: CN)
  Receive Date: 20130208
  Receipt Date: 20130208
  Transmission Date: 20140127
  Serious: Yes (Other)
  Sender: FDA-Public Use
  Company Number: PHHY2011CN101002

PATIENT
  Age: 86 None
  Sex: Female

DRUGS (2)
  1. VOTALIN [Suspect]
     Indication: ARTHRALGIA
     Dosage: 75 MG, UNK
     Route: 048
     Dates: start: 20111028, end: 20111028
  2. SODIUM FERULATE [Concomitant]

REACTIONS (1)
  - Hyperhidrosis [Recovered/Resolved]
